FAERS Safety Report 7282139-9 (Version None)
Quarter: 2011Q1

REPORT INFORMATION
  Report Type: 
  Country: None (occurrence: None)
  Receive Date: 20110208
  Receipt Date: 20110127
  Transmission Date: 20110831
  Serious: Yes (Disabling)
  Sender: FDA-Public Use
  Company Number: GB-PFIZER INC-2011026926

PATIENT
  Age: 82 Year
  Sex: Female

DRUGS (10)
  1. CORDARONE [Suspect]
     Dosage: 200 MG, UNK
     Dates: start: 20110101
  2. AMIODARONE HYDROCHLORIDE [Suspect]
     Indication: ATRIAL FIBRILLATION
     Dosage: 900 MG, UNK
     Route: 042
     Dates: start: 20110106
  3. ENOXAPARIN SODIUM [Concomitant]
  4. CODEINE [Concomitant]
  5. AMIODARONE HYDROCHLORIDE [Suspect]
     Dosage: 300 MG, UNK
  6. EZETIMIBE [Concomitant]
  7. PARACETAMOL [Concomitant]
  8. AMIODARONE HYDROCHLORIDE [Suspect]
     Dosage: 200 MG, ONCE
     Route: 048
  9. NEBIVOLOL [Concomitant]
  10. ASPIRIN [Concomitant]

REACTIONS (1)
  - DEAFNESS [None]
